FAERS Safety Report 9607854 (Version 2)
Quarter: 2013Q4

REPORT INFORMATION
  Report Type: Report from Study
  Country: KE (occurrence: KE)
  Receive Date: 20131009
  Receipt Date: 20131009
  Transmission Date: 20140711
  Serious: Yes (Death)
  Sender: FDA-Public Use
  Company Number: KE-009507513-1309KEN011808

PATIENT
  Age: 35 Year
  Sex: Female

DRUGS (16)
  1. RALTEGRAVIR POTASSIUM [Suspect]
     Dosage: UNK
     Route: 048
     Dates: start: 20130910, end: 20130912
  2. RALTEGRAVIR POTASSIUM [Suspect]
     Dosage: UNK
     Route: 048
     Dates: start: 20130920
  3. TENOFOVIR [Suspect]
     Dosage: UNK
     Dates: start: 20130910, end: 20130912
  4. SEPTRIN [Suspect]
     Dosage: UNK
     Dates: start: 20130902, end: 20130928
  5. CHLORAMPHENICOL [Suspect]
     Dosage: UNK
     Dates: start: 20130826, end: 20130909
  6. FLUCONAZOLE [Suspect]
     Dosage: UNK
     Dates: start: 20130830, end: 20130912
  7. CEFTRIAXONE SODIUM [Suspect]
     Dosage: UNK
     Dates: start: 20130909, end: 20130928
  8. PLASIL [Suspect]
     Dosage: UNK
     Dates: start: 20130909, end: 20130911
  9. ISONIAZID [Concomitant]
     Dosage: UNK
     Dates: start: 20130910, end: 20130912
  10. PHENOBARBITAL [Concomitant]
     Dosage: UNK
     Dates: start: 20130826, end: 20130829
  11. OMEPRAZOLE [Concomitant]
     Dosage: UNK
     Dates: start: 20130909, end: 20130912
  12. PYRIDOXINE [Concomitant]
     Dosage: UNK
     Dates: start: 20130910, end: 20130912
  13. AZITHROMYCIN [Suspect]
     Dosage: UNK
     Dates: start: 20130910, end: 20130915
  14. ALBENDAZOLE [Concomitant]
     Dosage: UNK
     Dates: start: 20130910, end: 20130910
  15. EMTRICITABINE [Concomitant]
     Dosage: UNK
     Dates: start: 20130910, end: 20130912
  16. EFAVIRENZ [Concomitant]
     Dosage: UNK
     Dates: start: 20130910, end: 20130912

REACTIONS (6)
  - Renal failure acute [Fatal]
  - Encephalitis [Fatal]
  - Anaemia [Fatal]
  - Pulmonary tuberculosis [Fatal]
  - Pneumocystis jirovecii pneumonia [Fatal]
  - Sepsis [Fatal]
